FAERS Safety Report 10354542 (Version 1)
Quarter: 2014Q3

REPORT INFORMATION
  Report Type: Spontaneous
  Country: US (occurrence: US)
  Receive Date: 20140731
  Receipt Date: 20140731
  Transmission Date: 20150326
  Serious: Yes (Other)
  Sender: FDA-Public Use
  Company Number: US-ASTRAZENECA-2014SE54123

PATIENT
  Age: 16 Year
  Sex: Male
  Weight: 44 kg

DRUGS (9)
  1. SEROQUEL XR [Suspect]
     Active Substance: QUETIAPINE FUMARATE
     Indication: AUTISM
     Route: 048
     Dates: end: 201406
  2. CLOMIPRAMINE [Concomitant]
     Active Substance: CLOMIPRAMINE
     Dosage: 25-75-75 TID
     Route: 048
  3. SEROQUEL XR [Suspect]
     Active Substance: QUETIAPINE FUMARATE
     Indication: ASPERGER^S DISORDER
     Route: 048
  4. GENERIC OF CONCERTA - METHYLPHENIDATE [Suspect]
     Active Substance: METHYLPHENIDATE
     Route: 048
  5. SEROQUEL XR [Suspect]
     Active Substance: QUETIAPINE FUMARATE
     Indication: ASPERGER^S DISORDER
     Dosage: GENERIC QUETIAPINE, 200 MG AT NIGHT
     Route: 048
     Dates: start: 201406
  6. SEROQUEL XR [Suspect]
     Active Substance: QUETIAPINE FUMARATE
     Indication: ASPERGER^S DISORDER
     Route: 048
     Dates: end: 201406
  7. ABILIFY [Concomitant]
     Active Substance: ARIPIPRAZOLE
  8. SEROQUEL XR [Suspect]
     Active Substance: QUETIAPINE FUMARATE
     Indication: AUTISM
     Route: 048
  9. SEROQUEL XR [Suspect]
     Active Substance: QUETIAPINE FUMARATE
     Indication: AUTISM
     Dosage: GENERIC QUETIAPINE, 200 MG AT NIGHT
     Route: 048
     Dates: start: 201406

REACTIONS (9)
  - Suicidal ideation [Unknown]
  - Drug intolerance [Unknown]
  - Homicidal ideation [Unknown]
  - Delusional disorder, unspecified type [Unknown]
  - Increased appetite [Unknown]
  - Psychotic disorder [Unknown]
  - Anger [Unknown]
  - Off label use [Unknown]
  - Thinking abnormal [Unknown]
